FAERS Safety Report 5146118-X (Version None)
Quarter: 2006Q4

REPORT INFORMATION
  Report Type: 
  Country: None (occurrence: None)
  Receive Date: 20061108
  Receipt Date: 20051103
  Transmission Date: 20070319
  Serious: Yes (Hospitalization, Disabling)
  Sender: FDA-Public Use
  Company Number: US-ROCHE-423816

PATIENT
  Sex: Female
  Weight: 90.7 kg

DRUGS (1)
  1. ACCUTANE [Suspect]
     Dosage: 5 MONTH COURSE.
     Route: 065
     Dates: start: 19901002, end: 19910615

REACTIONS (36)
  - ABORTION INDUCED [None]
  - ANAEMIA [None]
  - ANHEDONIA [None]
  - ANXIETY [None]
  - BACK PAIN [None]
  - BENIGN INTRACRANIAL HYPERTENSION [None]
  - BLOOD TRIGLYCERIDES INCREASED [None]
  - BRAIN OEDEMA [None]
  - CHRONIC SINUSITIS [None]
  - COLITIS [None]
  - CROHN'S DISEASE [None]
  - DECREASED APPETITE [None]
  - DEPRESSED MOOD [None]
  - DISTURBANCE IN ATTENTION [None]
  - EYE HAEMORRHAGE [None]
  - GASTRITIS [None]
  - GASTROINTESTINAL DISORDER [None]
  - HAEMANGIOMA [None]
  - HIATUS HERNIA [None]
  - HYPERHIDROSIS [None]
  - INFLAMMATORY BOWEL DISEASE [None]
  - INTESTINAL HAEMORRHAGE [None]
  - MIGRAINE [None]
  - MOOD SWINGS [None]
  - MUSCULOSKELETAL STIFFNESS [None]
  - MYDRIASIS [None]
  - NAUSEA [None]
  - NECK INJURY [None]
  - PAIN [None]
  - PAPILLOEDEMA [None]
  - PARAESTHESIA [None]
  - PREGNANCY [None]
  - RHEUMATOID ARTHRITIS [None]
  - RHINITIS PERENNIAL [None]
  - SCAR [None]
  - VISION BLURRED [None]
